FAERS Safety Report 15805900 (Version 1)
Quarter: 2019Q1

REPORT INFORMATION
  Report Type: Spontaneous
  Country: US (occurrence: US)
  Receive Date: 20190110
  Receipt Date: 20190110
  Transmission Date: 20190417
  Serious: Yes (Other)
  Sender: FDA-Public Use
  Company Number: US-ASTELLAS-2019US000851

PATIENT
  Age: 84 Year
  Sex: Female

DRUGS (3)
  1. MYRBETRIQ [Interacting]
     Active Substance: MIRABEGRON
     Route: 065
  2. MYRBETRIQ [Suspect]
     Active Substance: MIRABEGRON
     Indication: HYPERTONIC BLADDER
     Route: 065
  3. CYMBALTA [Interacting]
     Active Substance: DULOXETINE HYDROCHLORIDE
     Indication: PRODUCT USED FOR UNKNOWN INDICATION
     Dosage: UNK, UNKNOWN FREQ.
     Route: 065

REACTIONS (3)
  - Hypertonic bladder [Unknown]
  - Hallucination [Unknown]
  - Drug interaction [Unknown]
